FAERS Safety Report 5288575-4 (Version None)
Quarter: 2007Q2

REPORT INFORMATION
  Report Type: 
  Country: None (occurrence: None)
  Receive Date: 20070405
  Receipt Date: 20070404
  Transmission Date: 20071010
  Serious: Yes (Hospitalization)
  Sender: FDA-Public Use
  Company Number: US-BRISTOL-MYERS SQUIBB COMPANY-13739255

PATIENT
  Age: 48 Year
  Sex: Female
  Weight: 68 kg

DRUGS (12)
  1. CARBOPLATIN [Suspect]
     Indication: BREAST CANCER METASTATIC
     Route: 042
     Dates: start: 20070329, end: 20070329
  2. IRINOTECAN HCL [Suspect]
     Indication: BREAST CANCER METASTATIC
     Route: 042
     Dates: start: 20070329, end: 20070329
  3. GABAPENTIN [Concomitant]
  4. ASPIRIN [Concomitant]
  5. ZOLOFT [Concomitant]
  6. METOPROLOL SUCCINATE [Concomitant]
  7. LEVOTHYROXINE SODIUM [Concomitant]
  8. LOVASTATIN [Concomitant]
  9. MOBIC [Concomitant]
  10. DIOVAN [Concomitant]
  11. HUMALOG [Concomitant]
  12. LANTUS [Concomitant]

REACTIONS (2)
  - DEHYDRATION [None]
  - NEUTROPENIA [None]
